FAERS Safety Report 6077847-1 (Version None)
Quarter: 2009Q1

REPORT INFORMATION
  Report Type: 
  Country: None (occurrence: None)
  Receive Date: 20090213
  Receipt Date: 20090206
  Transmission Date: 20090719
  Serious: Yes (Hospitalization)
  Sender: FDA-Public Use
  Company Number: FR-WYE-G02750608

PATIENT
  Sex: Female
  Weight: 110 kg

DRUGS (5)
  1. RAPAMUNE [Suspect]
     Indication: PROPHYLAXIS AGAINST TRANSPLANT REJECTION
     Dosage: 3 MG TOTAL DAILY
     Route: 048
     Dates: start: 20080117, end: 20080501
  2. RAPAMUNE [Suspect]
     Route: 048
     Dates: start: 20080501
  3. CORTANCYL [Concomitant]
     Route: 048
     Dates: start: 19920101, end: 20080501
  4. CORTANCYL [Concomitant]
     Dosage: 40 MG TOTAL DAILY
     Route: 048
     Dates: start: 20080501
  5. MYFORTIC [Concomitant]
     Route: 048
     Dates: start: 20080117

REACTIONS (5)
  - ALVEOLITIS ALLERGIC [None]
  - BLOOD CREATININE INCREASED [None]
  - DRUG LEVEL ABOVE THERAPEUTIC [None]
  - GAMMA-GLUTAMYLTRANSFERASE INCREASED [None]
  - HYPOXIA [None]
